FAERS Safety Report 14068790 (Version 3)
Quarter: 2018Q2

REPORT INFORMATION
  Report Type: Spontaneous
  Country: RU (occurrence: RU)
  Receive Date: 20171010
  Receipt Date: 20180503
  Transmission Date: 20180711
  Serious: Yes (Other)
  Sender: FDA-Public Use
  Company Number: RU-ASTRAZENECA-2017SF01102

PATIENT
  Age: 63 Year
  Sex: Female
  Weight: 65 kg

DRUGS (6)
  1. METFORMIN [Concomitant]
     Active Substance: METFORMIN HYDROCHLORIDE
  2. ENALAPRIL [Concomitant]
     Active Substance: ENALAPRIL
  3. ATORVASTATIN [Concomitant]
     Active Substance: ATORVASTATIN
  4. BRILINTA [Suspect]
     Active Substance: TICAGRELOR
     Indication: MYOCARDIAL INFARCTION
     Route: 048
     Dates: start: 20170210
  5. L-THYROXIN [Concomitant]
     Active Substance: LEVOTHYROXINE SODIUM
  6. GUTTALAX [Concomitant]

REACTIONS (4)
  - Vascular stent occlusion [Not Recovered/Not Resolved]
  - Drug dose omission [Unknown]
  - Off label use [Not Recovered/Not Resolved]
  - Product use issue [Not Recovered/Not Resolved]

NARRATIVE: CASE EVENT DATE: 20170630
